FAERS Safety Report 22282631 (Version 1)
Quarter: 2023Q2

REPORT INFORMATION
  Report Type: Spontaneous
  Country: CA (occurrence: CA)
  Receive Date: 20230504
  Receipt Date: 20230504
  Transmission Date: 20230722
  Serious: Yes (Other)
  Sender: FDA-Public Use
  Company Number: CA-SUN PHARMACEUTICAL INDUSTRIES LTD-2023R1-387249

PATIENT
  Age: 38 Year
  Sex: Female

DRUGS (2)
  1. ESTRADIOL [Suspect]
     Active Substance: ESTRADIOL
     Indication: Transgender hormonal therapy
     Dosage: UNK
     Route: 065
  2. SPIRONOLACTONE [Suspect]
     Active Substance: SPIRONOLACTONE
     Indication: Transgender hormonal therapy
     Dosage: UNK
     Route: 065

REACTIONS (4)
  - Testis cancer [Recovered/Resolved]
  - Deep vein thrombosis [Recovered/Resolved]
  - Hydronephrosis [Recovered/Resolved]
  - Abdominal lymphadenopathy [Recovered/Resolved]

NARRATIVE: CASE EVENT DATE: 20160101
